FAERS Safety Report 8105535-6 (Version None)
Quarter: 2012Q1

REPORT INFORMATION
  Report Type: 
  Country: None (occurrence: None)
  Receive Date: 20120201
  Receipt Date: 20120127
  Transmission Date: 20120608
  Serious: Yes (Hospitalization, Disabling)
  Sender: FDA-Public Use
  Company Number: NO-PFIZER INC-2011233298

PATIENT
  Age: 20 Year
  Sex: Female
  Weight: 43 kg

DRUGS (4)
  1. DEPO-PROVERA [Suspect]
     Indication: POLYCYSTIC OVARIES
  2. DIANE [Suspect]
     Indication: HIRSUTISM
     Dosage: UNK
     Route: 048
     Dates: start: 20000901, end: 20010101
  3. DIANE [Suspect]
     Indication: ACNE
  4. DEPO-PROVERA [Suspect]
     Indication: OFF LABEL USE
     Dosage: 1 DF, ONLY ONE DOSE TAKEN
     Dates: start: 20000501, end: 20000101

REACTIONS (23)
  - MAJOR DEPRESSION [None]
  - HALLUCINATION [None]
  - HYPERHIDROSIS [None]
  - ERYTHEMA [None]
  - HIRSUTISM [None]
  - ACNE [None]
  - HEADACHE [None]
  - DECREASED APPETITE [None]
  - ANXIETY [None]
  - APATHY [None]
  - SLEEP DISORDER [None]
  - PSYCHOTIC DISORDER [None]
  - CATATONIA [None]
  - AUTISM [None]
  - NIGHTMARE [None]
  - COORDINATION ABNORMAL [None]
  - ANOREXIA NERVOSA [None]
  - ASTHENIA [None]
  - DYSPNOEA [None]
  - DISTURBANCE IN ATTENTION [None]
  - VISUAL IMPAIRMENT [None]
  - FATIGUE [None]
  - PARAESTHESIA [None]
